FAERS Safety Report 19689148 (Version 1)
Quarter: 2021Q3

REPORT INFORMATION
  Report Type: Spontaneous
  Country: US (occurrence: US)
  Receive Date: 20210811
  Receipt Date: 20210811
  Transmission Date: 20211014
  Serious: No
  Sender: FDA-Public Use
  Company Number: US-SA-2021SA265406

PATIENT
  Sex: Female
  Weight: 70.7 kg

DRUGS (10)
  1. VITAMINS NOS [Concomitant]
     Active Substance: VITAMINS
     Dosage: UNK
     Route: 065
  2. DUPIXENT [Suspect]
     Active Substance: DUPILUMAB
     Indication: ASTHMA
     Dosage: 300 MG, QOW
     Route: 058
  3. TRACE ELEMENTS [Suspect]
     Active Substance: UNSPECIFIED INGREDIENT
     Dosage: 4 0.5?0.1?30,VIAL
     Route: 065
  4. INTRAROSA [Concomitant]
     Active Substance: PRASTERONE
     Dosage: INSERT
     Route: 065
  5. VITAMIN D3 [Concomitant]
     Active Substance: CHOLECALCIFEROL
     Dosage: UNK
     Route: 065
  6. THEANINE [Concomitant]
     Active Substance: THEANINE
     Dosage: POWDER
     Route: 065
  7. VITAMIN K2 [MENAQUINONE] [Concomitant]
     Active Substance: MENAQUINONE 6
     Dosage: UNK
     Route: 065
  8. ASHWAGANDHA [WITHANIA SOMNIFERA] [Suspect]
     Active Substance: HERBALS
     Dosage: UNK
     Route: 065
  9. DOTTI [Concomitant]
     Active Substance: ESTRADIOL
     Dosage: 24H PATCH
     Route: 065
  10. OMEGA 3 [FISH OIL] [Concomitant]
     Active Substance: FISH OIL
     Dosage: UNK
     Route: 065

REACTIONS (3)
  - Discomfort [Unknown]
  - Nausea [Unknown]
  - Product use issue [Unknown]
